FAERS Safety Report 7810413-3 (Version None)
Quarter: 2011Q4

REPORT INFORMATION
  Report Type: 
  Country: None (occurrence: None)
  Receive Date: 20111012
  Receipt Date: 20111005
  Transmission Date: 20120403
  Serious: Yes (Other)
  Sender: FDA-Public Use
  Company Number: US-RB-032618-11

PATIENT
  Age: 24 Year
  Sex: Female

DRUGS (4)
  1. PHENOBARBITAL TAB [Concomitant]
     Indication: EPILEPSY
     Dosage: UNKNOWN EXACT DOSING DETAILS-TAKES ONE TABLET THREE TIMES A DAY
     Dates: end: 20110901
  2. KEPPRA [Suspect]
     Indication: EPILEPSY
     Route: 048
     Dates: start: 20110901
  3. SUBOXONE [Suspect]
     Indication: DRUG DEPENDENCE
     Route: 060
     Dates: start: 20110701
  4. TOPAMAX [Suspect]
     Indication: EPILEPSY
     Dosage: TAKES 75 MG IN AM AND 100 MG AT BEDTIME
     Route: 048
     Dates: start: 20110901

REACTIONS (3)
  - CONDITION AGGRAVATED [None]
  - CONVULSION [None]
  - WRONG TECHNIQUE IN DRUG USAGE PROCESS [None]
